FAERS Safety Report 23818783 (Version 1)
Quarter: 2024Q2

REPORT INFORMATION
  Report Type: Spontaneous
  Country: US (occurrence: US)
  Receive Date: 20240506
  Receipt Date: 20240506
  Transmission Date: 20240716
  Serious: No
  Sender: FDA-Public Use
  Company Number: US-UCBSA-2023038628

PATIENT
  Sex: Female

DRUGS (2)
  1. CIMZIA [Suspect]
     Active Substance: CERTOLIZUMAB PEGOL
     Indication: Ankylosing spondylitis
     Dosage: 400 MILLIGRAM, EV 2 WEEKS(QOW)
     Route: 058
     Dates: start: 202011
  2. CIMZIA [Suspect]
     Active Substance: CERTOLIZUMAB PEGOL
     Indication: Psoriatic arthropathy
     Dosage: UNK
     Route: 058
     Dates: start: 202101

REACTIONS (9)
  - Tongue blistering [Unknown]
  - Glossitis [Unknown]
  - Lip blister [Unknown]
  - Oral mucosal blistering [Unknown]
  - Oral mucosal erythema [Unknown]
  - Oral pain [Unknown]
  - Wound [Not Recovered/Not Resolved]
  - Psoriasis [Not Recovered/Not Resolved]
  - Tinea infection [Not Recovered/Not Resolved]
